FAERS Safety Report 23351261 (Version 1)
Quarter: 2023Q4

REPORT INFORMATION
  Report Type: Spontaneous
  Country: US (occurrence: None)
  Receive Date: 20231229
  Receipt Date: 20231229
  Transmission Date: 20240110
  Serious: No
  Sender: FDA-Public Use
  Company Number: US-Nobelpharma America, LLC-NPA-2023-02508

PATIENT
  Sex: Male

DRUGS (1)
  1. HYFTOR [Suspect]
     Active Substance: SIROLIMUS
     Indication: Tuberous sclerosis complex
     Dosage: APPLY 2.5 CM EXTERNALLY EVERY MORNING AND 2.5 CM EVERY EVENING
     Route: 003
     Dates: start: 20230309

REACTIONS (1)
  - Dry skin [Unknown]
